FAERS Safety Report 10636652 (Version 1)
Quarter: 2014Q4

REPORT INFORMATION
  Report Type: Spontaneous
  Country: US (occurrence: US)
  Receive Date: 20141208
  Receipt Date: 20141208
  Transmission Date: 20150529
  Serious: Yes (Other)
  Sender: FDA-Public Use
  Company Number: US-AMGEN-USASP2014094208

PATIENT
  Age: 51 Year
  Sex: Male

DRUGS (1)
  1. EPOGEN [Suspect]
     Active Substance: ERYTHROPOIETIN
     Indication: NEPHROGENIC ANAEMIA
     Dosage: 15000 UNIT, 3 TIMES/WK
     Route: 042
     Dates: start: 201405

REACTIONS (13)
  - Anxiety [Unknown]
  - Vitamin D deficiency [Unknown]
  - Anaemia [Unknown]
  - Hypertension [Unknown]
  - Type 2 diabetes mellitus [Unknown]
  - Phosphorus metabolism disorder [Unknown]
  - Calcium metabolism disorder [Unknown]
  - Drug effect incomplete [Unknown]
  - Pruritus [Unknown]
  - Chest pain [Unknown]
  - Hyperlipidaemia [Unknown]
  - Magnesium metabolism disorder [Unknown]
  - Dyspnoea [Unknown]
